FAERS Safety Report 15546394 (Version 2)
Quarter: 2018Q4

REPORT INFORMATION
  Report Type: Spontaneous
  Country: US (occurrence: US)
  Receive Date: 20181024
  Receipt Date: 20181030
  Transmission Date: 20190205
  Serious: Yes (Other)
  Sender: FDA-Public Use
  Company Number: US-RECKITT BENCKISER HEALTHCARE INT LIMITED-RB-92653-2018

PATIENT
  Age: 11 Year
  Sex: Male
  Weight: 40.82 kg

DRUGS (1)
  1. CHILDRENS MUCINEX NIGHT TIME MULTI-SYMPTOM COLD [Suspect]
     Active Substance: ACETAMINOPHEN\DIPHENHYDRAMINE HYDROCHLORIDE\PHENYLEPHRINE HYDROCHLORIDE
     Indication: PRODUCT USED FOR UNKNOWN INDICATION
     Dosage: 10 MILLILITER, SINGLE
     Route: 065
     Dates: start: 20181016, end: 20181016

REACTIONS (5)
  - Product administered to patient of inappropriate age [Recovered/Resolved]
  - Viral infection [Not Recovered/Not Resolved]
  - Eye swelling [Recovered/Resolved]
  - Hypersensitivity [Recovered/Resolved]
  - Vomiting [Recovered/Resolved]

NARRATIVE: CASE EVENT DATE: 201810
